FAERS Safety Report 10222447 (Version 1)
Quarter: 2014Q2

REPORT INFORMATION
  Report Type: Spontaneous
  Country: IT (occurrence: IT)
  Receive Date: 20140606
  Receipt Date: 20140606
  Transmission Date: 20141212
  Serious: Yes (Other)
  Sender: FDA-Public Use
  Company Number: IT-WATSON-2013-25344

PATIENT
  Age: 66 Year
  Sex: Female

DRUGS (3)
  1. CIPROFLOXACIN HYDROCHLORIDE (UNKNOWN) [Suspect]
     Indication: PRODUCT USED FOR UNKNOWN INDICATION
     Route: 048
     Dates: start: 20130828, end: 20130905
  2. AUGMENTIN [Concomitant]
     Indication: PRODUCT USED FOR UNKNOWN INDICATION
     Route: 065
     Dates: start: 20130821, end: 20130827
  3. AUGMENTIN [Concomitant]
     Dosage: 125 MG, UNK
     Route: 065
     Dates: start: 20130821, end: 20130827

REACTIONS (1)
  - Tendon injury [Recovering/Resolving]
